FAERS Safety Report 16383400 (Version 1)
Quarter: 2019Q2

REPORT INFORMATION
  Report Type: Spontaneous
  Country: DK (occurrence: DK)
  Receive Date: 20190603
  Receipt Date: 20190603
  Transmission Date: 20190711
  Serious: Yes (Hospitalization)
  Sender: FDA-Public Use
  Company Number: PHHY2019DK122462

PATIENT
  Age: 79 Year
  Sex: Male

DRUGS (16)
  1. SIMVASTATIN. [Concomitant]
     Active Substance: SIMVASTATIN
     Indication: HYPERCHOLESTEROLAEMIA
     Dosage: 20 MG, QD
     Route: 048
     Dates: start: 20130617
  2. KININ [Concomitant]
     Active Substance: QUININE HYDROCHLORIDE
     Indication: MUSCLE SPASMS
     Dosage: 100 MG, QD
     Route: 048
     Dates: start: 20130710
  3. CLOPIDOGREL [Concomitant]
     Active Substance: CLOPIDOGREL BISULFATE
     Indication: THROMBOSIS PROPHYLAXIS
     Dosage: 75 MG, QD
     Route: 048
     Dates: start: 20130622
  4. CITALOPRAM [Concomitant]
     Active Substance: CITALOPRAM HYDROBROMIDE
     Indication: MENTAL DISORDER
     Dosage: 20 MG, QD
     Route: 048
     Dates: start: 20131014
  5. CARVEDILOL. [Suspect]
     Active Substance: CARVEDILOL
     Indication: HYPERTENSION
     Dosage: 25 MG, QD
     Route: 048
     Dates: start: 20130617
  6. BRENTAN [Concomitant]
     Active Substance: HYDROCORTISONE\MICONAZOLE
     Indication: FUNGAL INFECTION
     Dosage: 2 DF, QD
     Route: 061
     Dates: start: 20140909
  7. BENDROZA [Suspect]
     Active Substance: BENDROFLUMETHIAZIDE\POTASSIUM CHLORIDE
     Indication: HYPERTENSION
     Dosage: 1 DF, QD (573MG +1,25MG )
     Route: 048
     Dates: start: 20151120
  8. LAXOBERAL [Concomitant]
     Active Substance: SODIUM PICOSULFATE
     Indication: CONSTIPATION
     Dosage: 15 DF, UNK
     Route: 048
     Dates: start: 20130710
  9. MOVICOL [Concomitant]
     Active Substance: POLYETHYLENE GLYCOL 3350\POTASSIUM CHLORIDE\SODIUM BICARBONATE\SODIUM CHLORIDE
     Indication: CONSTIPATION
     Dosage: 1 DF, QD
     Route: 048
     Dates: start: 20130808
  10. AMLODIPINE [Suspect]
     Active Substance: AMLODIPINE BESYLATE
     Indication: HYPERTENSION
     Dosage: 5 MG, QD
     Route: 048
     Dates: start: 20130617
  11. RAMIPRIL KRKA [Suspect]
     Active Substance: RAMIPRIL
     Indication: HYPERTENSION
     Dosage: 10 MG, QD
     Route: 048
     Dates: start: 20130619
  12. PINEX [Concomitant]
     Indication: PAIN
     Dosage: 1000 MG, UNK
     Route: 048
     Dates: start: 20130801
  13. BRENTACORT [Concomitant]
     Indication: ECZEMA INFECTED
     Dosage: 2 DF, QD (20+10 MG/G )
     Route: 061
     Dates: start: 20171117
  14. PROCTOSEDYL [Concomitant]
     Active Substance: DIBUCAINE HYDROCHLORIDE\HYDROCORTISONE
     Indication: HAEMORRHOIDS
     Dosage: 3 DF, QD
     Route: 054
     Dates: start: 20160610
  15. DERMOVAT [Concomitant]
     Active Substance: CLOBETASOL
     Indication: SKIN DISORDER
     Dosage: 1 DF, QD
     Route: 061
     Dates: start: 20180416
  16. OMEPRAZOLE. [Concomitant]
     Active Substance: OMEPRAZOLE
     Indication: GASTRIC ULCER
     Dosage: 20 MG, QD
     Route: 048
     Dates: start: 20130912

REACTIONS (4)
  - Fall [Recovered/Resolved]
  - Bradycardia [Recovered/Resolved]
  - Hip fracture [Unknown]
  - Hypotension [Recovered/Resolved]

NARRATIVE: CASE EVENT DATE: 20190515
